FAERS Safety Report 19066340 (Version 1)
Quarter: 2021Q1

REPORT INFORMATION
  Report Type: Spontaneous
  Country: DE (occurrence: DE)
  Receive Date: 20210328
  Receipt Date: 20210328
  Transmission Date: 20210420
  Serious: Yes (Hospitalization)
  Sender: FDA-Public Use
  Company Number: DE-TEVA-2021-DE-1894485

PATIENT
  Age: 79 Year
  Sex: Male

DRUGS (11)
  1. PANTOPRAZOL [Concomitant]
     Active Substance: PANTOPRAZOLE SODIUM
     Dosage: 20 MILLIGRAM DAILY; 20 MG / MON WED FRI, 1?0?0?0
  2. METOPROLOL. [Concomitant]
     Active Substance: METOPROLOL
     Dosage: 23.75 MILLIGRAM DAILY;  1?0?0?0,
  3. RAMIPRIL/HYDROCHLOROTHIAZID [Concomitant]
     Active Substance: HYDROCHLOROTHIAZIDE\RAMIPRIL
     Dosage: 1 DOSAGE FORMS DAILY; 12.5|5 MG, 1?0?0?0
  4. RAMIPRIL. [Concomitant]
     Active Substance: RAMIPRIL
     Dosage: .5 MILLIGRAM DAILY; 5 MG, 0?0?0.5?0
  5. MIRTAZAPIN [Concomitant]
     Active Substance: MIRTAZAPINE
     Dosage: 30 MILLIGRAM DAILY;   0?0?0?1
  6. CLOPIDOGREL [Suspect]
     Active Substance: CLOPIDOGREL BISULFATE
     Dosage: 75 MILLIGRAM DAILY;  1?0?0?0
  7. NATUCOR 450MG [Concomitant]
     Dosage: 900 MILLIGRAM DAILY;  1?0?1?0,
  8. SIMVASTATIN. [Concomitant]
     Active Substance: SIMVASTATIN
     Dosage: .5 DOSAGE FORMS DAILY; 20 MG, 0?0?0.5?0
  9. GLYCEROLTRINITRAT [Concomitant]
     Active Substance: NITROGLYCERIN
     Dosage: NEED, SOLUTION
  10. ALLOPURINOL. [Concomitant]
     Active Substance: ALLOPURINOL
     Dosage: 300 MG,
  11. PREGABALIN. [Concomitant]
     Active Substance: PREGABALIN
     Dosage: 200 MILLIGRAM DAILY;  1?0?1?0,

REACTIONS (1)
  - Haematochezia [Unknown]

NARRATIVE: CASE EVENT DATE: 20201203
